FAERS Safety Report 8565194 (Version 4)
Quarter: 2013Q4

REPORT INFORMATION
  Report Type: Spontaneous
  Country: US (occurrence: US)
  Receive Date: 20120516
  Receipt Date: 20131231
  Transmission Date: 20140711
  Serious: Yes (Hospitalization)
  Sender: FDA-Public Use
  Company Number: US-BAYER-2012-047536

PATIENT
  Age: 37 Year
  Sex: Female
  Weight: 70.3 kg

DRUGS (6)
  1. YASMIN [Suspect]
     Dosage: UNK, 1 DAILY
     Dates: start: 200602, end: 200605
  2. DESONIDE [Concomitant]
     Dosage: 0.05 %, EVERY NIGHT
     Route: 061
  3. ALPHAQUIN HP [Concomitant]
     Dosage: 4 %, BID
     Route: 061
  4. RENOVA [Concomitant]
     Dosage: 0.2 %, EVERY OTHER NIGHT
     Route: 061
  5. UMECTA [Concomitant]
     Dosage: 120 G, APPLY TO ARMS
     Route: 061
  6. DESOXIMETASONE [Concomitant]
     Dosage: 0.25 %, APPLY BID TO AFFECTED AREAS
     Route: 061

REACTIONS (7)
  - Deep vein thrombosis [None]
  - Pain [None]
  - Injury [None]
  - Anxiety [None]
  - Anhedonia [None]
  - Fear [None]
  - Mental disorder [None]
